FAERS Safety Report 8598733-9 (Version None)
Quarter: 2012Q3

REPORT INFORMATION
  Report Type: 
  Country: None (occurrence: None)
  Receive Date: 20120816
  Receipt Date: 20120807
  Transmission Date: 20120928
  Serious: Yes (Hospitalization, Other)
  Sender: FDA-Public Use
  Company Number: FR-ASTRAZENECA-2012SE56444

PATIENT
  Age: 34438 Day
  Sex: Female

DRUGS (4)
  1. OMEPRAZOLE [Suspect]
     Indication: GASTRIC DISORDER
     Route: 048
     Dates: end: 20120522
  2. LEVOTHYROXINE SODIUM [Concomitant]
     Indication: HYPOTHYROIDISM
  3. CORDARONE [Concomitant]
     Indication: ARRHYTHMIA
  4. ASPIRIN [Concomitant]
     Indication: ARRHYTHMIA

REACTIONS (5)
  - ATRIAL FIBRILLATION [None]
  - CONFUSIONAL STATE [None]
  - PNEUMONIA ASPIRATION [None]
  - FALL [None]
  - HYPONATRAEMIA [None]
